FAERS Safety Report 24781728 (Version 1)
Quarter: 2024Q4

REPORT INFORMATION
  Report Type: Spontaneous
  Country: US (occurrence: US)
  Receive Date: 20241227
  Receipt Date: 20241227
  Transmission Date: 20250114
  Serious: Yes (Other)
  Sender: AUROBINDO
  Company Number: US-MLMSERVICE-20241209-PI284857-00312-1

PATIENT
  Age: 58 Year
  Sex: Male

DRUGS (2)
  1. TESTOSTERONE [Suspect]
     Active Substance: TESTOSTERONE
     Indication: Hypogonadism
     Dosage: UNK [THREE YEARS PRIOR]
     Route: 065
  2. CLOMIPHENE [Concomitant]
     Active Substance: CLOMIPHENE
     Indication: Hypogonadism
     Dosage: UNK
     Route: 065

REACTIONS (1)
  - Cardiac failure [Unknown]
